FAERS Safety Report 5175316-4 (Version None)
Quarter: 2006Q4

REPORT INFORMATION
  Report Type: 
  Country: None (occurrence: None)
  Receive Date: 20061212
  Receipt Date: 20061212
  Transmission Date: 20070319
  Serious: No
  Sender: FDA-Public Use
  Company Number: None

PATIENT
  Sex: Male
  Weight: 66.7 kg

DRUGS (6)
  1. DOXORUBICIN HYDROCHLORIDE [Suspect]
     Indication: CHEMOTHERAPY
     Dosage: 90 MG
  2. DOXORUBICIN HYDROCHLORIDE [Suspect]
     Indication: HODGKIN'S DISEASE
     Dosage: 90 MG
  3. GEMCITABINE HCL [Suspect]
     Indication: CHEMOTHERAPY
     Dosage: 2864 MG
  4. GEMCITABINE HCL [Suspect]
     Indication: HODGKIN'S DISEASE
     Dosage: 2864 MG
  5. VINBLASTINE SULFATE [Suspect]
     Indication: CHEMOTHERAPY
     Dosage: 22 MG
  6. VINBLASTINE SULFATE [Suspect]
     Indication: HODGKIN'S DISEASE
     Dosage: 22 MG

REACTIONS (1)
  - NEUTROPENIA [None]
